FAERS Safety Report 6622017-9 (Version None)
Quarter: 2010Q1

REPORT INFORMATION
  Report Type: 
  Country: None (occurrence: None)
  Receive Date: 20100304
  Receipt Date: 20100222
  Transmission Date: 20100710
  Serious: Yes (Hospitalization)
  Sender: FDA-Public Use
  Company Number: B0636611A

PATIENT
  Age: 45 Year
  Sex: Male
  Weight: 65.8623 kg

DRUGS (8)
  1. ZIDOVUDINE [Suspect]
     Indication: HIV INFECTION
     Dates: start: 20010701
  2. ABACAVIR SULFATE AND LAMIVUDINE [Suspect]
     Indication: HIV INFECTION
     Dates: start: 20031001
  3. STAVUDINE [Suspect]
     Indication: HIV INFECTION
     Dates: start: 19991101
  4. DIDANOSINE [Suspect]
     Indication: HIV INFECTION
     Dates: start: 19991101
  5. NELFINAVIR MESYLATE [Suspect]
     Indication: HIV INFECTION
     Dates: start: 20010701
  6. INDINIVIR SULFATE [Suspect]
     Indication: HIV INFECTION
     Dates: start: 20020701
  7. SAQUINAVIR + RITONAVIR (FORMULATION UNKNOWN) (SAQUINAVIR + RITONAVIR) [Suspect]
     Indication: HIV INFECTION
     Dates: start: 20031001
  8. LOPINAVIR AND RITONAVIR [Suspect]
     Indication: HIV INFECTION
     Dates: start: 20040701

REACTIONS (1)
  - OSTEONECROSIS [None]
